FAERS Safety Report 4935501-0 (Version None)
Quarter: 2006Q1

REPORT INFORMATION
  Report Type: 
  Country: None (occurrence: None)
  Receive Date: 20060307
  Receipt Date: 20050822
  Transmission Date: 20060701
  Serious: No
  Sender: FDA-Public Use
  Company Number: US-GLAXOSMITHKLINE-A0571263A

PATIENT
  Age: 82 Year
  Sex: Male
  Weight: 70 kg

DRUGS (2)
  1. REQUIP [Suspect]
     Indication: PARKINSON'S DISEASE
     Dosage: .75MG THREE TIMES PER DAY
     Route: 048
     Dates: start: 20050716, end: 20050730
  2. SINEMET [Concomitant]

REACTIONS (1)
  - TINNITUS [None]
